FAERS Safety Report 21573761 (Version 1)
Quarter: 2022Q4

REPORT INFORMATION
  Report Type: Report from Study
  Country: US (occurrence: US)
  Receive Date: 20221109
  Receipt Date: 20221109
  Transmission Date: 20230113
  Serious: Yes (Hospitalization, Other)
  Sender: FDA-Public Use
  Company Number: US-HORIZON THERAPEUTICS-HZN-2022-006956

PATIENT

DRUGS (2)
  1. TEPEZZA [Suspect]
     Active Substance: TEPROTUMUMAB-TRBW
     Indication: Endocrine ophthalmopathy
     Dosage: FIRST INFUSION 10 MG/KG (FIRST INFUSION)
     Route: 042
     Dates: start: 20220902
  2. TEPEZZA [Suspect]
     Active Substance: TEPROTUMUMAB-TRBW
     Dosage: 3RD INFUSION 20 MG/KG, THIRD INFUSION
     Route: 042
     Dates: start: 2022

REACTIONS (7)
  - Tachycardia [Unknown]
  - Blood pressure increased [Unknown]
  - Dizziness [Unknown]
  - Headache [Unknown]
  - Crohn^s disease [Unknown]
  - Ear discomfort [Unknown]
  - Fatigue [Unknown]

NARRATIVE: CASE EVENT DATE: 20220101
